FAERS Safety Report 23207850 (Version 1)
Quarter: 2023Q4

REPORT INFORMATION
  Report Type: Spontaneous
  Country: US (occurrence: US)
  Receive Date: 20231121
  Receipt Date: 20231121
  Transmission Date: 20240110
  Serious: No
  Sender: FDA-Public Use
  Company Number: US-ABBVIE-5504911

PATIENT
  Age: 98 Year
  Sex: Female

DRUGS (1)
  1. RESTASIS [Suspect]
     Active Substance: CYCLOSPORINE
     Indication: Product used for unknown indication
     Route: 047

REACTIONS (4)
  - Sensation of foreign body [Unknown]
  - Expired product administered [Unknown]
  - Multiple allergies [Unknown]
  - Lacrimation increased [Unknown]
